FAERS Safety Report 11322632 (Version 1)
Quarter: 2015Q3

REPORT INFORMATION
  Report Type: Spontaneous
  Country: US (occurrence: US)
  Receive Date: 20150730
  Receipt Date: 20150730
  Transmission Date: 20151125
  Serious: Yes (Hospitalization)
  Sender: FDA-Public Use
  Company Number: US-SA-2015SA110460

PATIENT
  Age: 64 Year
  Sex: Male

DRUGS (3)
  1. BCG FOR IMMUNOTHERAPY [Suspect]
     Active Substance: BACILLUS CALMETTE-GUERIN ANTIGEN, UNSPECIFIED SUBSTRAIN
     Indication: BLADDER CANCER
     Route: 043
  2. BCG FOR IMMUNOTHERAPY [Suspect]
     Active Substance: BACILLUS CALMETTE-GUERIN ANTIGEN, UNSPECIFIED SUBSTRAIN
     Indication: BLADDER CANCER
     Route: 043
  3. MITOMYCIN C [Concomitant]
     Active Substance: MITOMYCIN
     Route: 065

REACTIONS (9)
  - Intervertebral discitis [Recovered/Resolved]
  - Back pain [Recovered/Resolved]
  - Osteomyelitis bacterial [Recovered/Resolved]
  - Night sweats [Recovered/Resolved]
  - Muscular weakness [Recovered/Resolved]
  - Disseminated Bacillus Calmette-Guerin infection [Recovered/Resolved]
  - Fatigue [Recovered/Resolved]
  - Bladder cancer recurrent [Recovered/Resolved]
  - Tachycardia [Recovered/Resolved]
